FAERS Safety Report 11316093 (Version 2)
Quarter: 2019Q3

REPORT INFORMATION
  Report Type: Report from Study
  Country: US (occurrence: US)
  Receive Date: 20150728
  Receipt Date: 20190701
  Transmission Date: 20191004
  Serious: Yes (Other)
  Sender: FDA-Public Use
  Company Number: US-ROCHE-1048523

PATIENT

DRUGS (2)
  1. CAPECITABINE. [Suspect]
     Active Substance: CAPECITABINE
     Indication: RECTAL ADENOCARCINOMA
     Route: 065
  2. OXALIPLATIN. [Suspect]
     Active Substance: OXALIPLATIN
     Indication: RECTAL ADENOCARCINOMA
     Dosage: FOR 5 DOSES
     Route: 042

REACTIONS (11)
  - Decreased appetite [Unknown]
  - Diarrhoea [Unknown]
  - Stomatitis [Unknown]
  - Enteritis [Unknown]
  - Nausea [Unknown]
  - Vomiting [Unknown]
  - Dyspepsia [Unknown]
  - Endoscopy large bowel abnormal [Unknown]
  - Dehydration [Unknown]
  - Peripheral sensory neuropathy [Unknown]
  - Dysphagia [Unknown]
